FAERS Safety Report 18600067 (Version 1)
Quarter: 2020Q4

REPORT INFORMATION
  Report Type: Spontaneous
  Country: US (occurrence: US)
  Receive Date: 20201209
  Receipt Date: 20201209
  Transmission Date: 20210114
  Serious: No
  Sender: FDA-Public Use
  Company Number: None

PATIENT
  Age: 27 Year
  Sex: Female
  Weight: 111.13 kg

DRUGS (4)
  1. FIORICET [Concomitant]
     Active Substance: ACETAMINOPHEN\BUTALBITAL\CAFFEINE
  2. ACETAMINOPHEN. [Concomitant]
     Active Substance: ACETAMINOPHEN
  3. IBUPROFEN. [Concomitant]
     Active Substance: IBUPROFEN
  4. NEXPLANON [Suspect]
     Active Substance: ETONOGESTREL
     Dates: start: 20180215

REACTIONS (3)
  - Migraine [None]
  - Head discomfort [None]
  - Mass [None]

NARRATIVE: CASE EVENT DATE: 20201122
